FAERS Safety Report 9656437 (Version 4)
Quarter: 2014Q4

REPORT INFORMATION
  Report Type: Spontaneous
  Country: US (occurrence: US)
  Receive Date: 20131030
  Receipt Date: 20141031
  Transmission Date: 20150529
  Serious: Yes (Hospitalization, Disabling)
  Sender: FDA-Public Use
  Company Number: US-BAYER-2013-128587

PATIENT
  Age: 37 Year
  Sex: Female

DRUGS (1)
  1. MIRENA [Suspect]
     Active Substance: LEVONORGESTREL
     Indication: CONTRACEPTION
     Dosage: 20 MCG/24HR, CONT
     Route: 015
     Dates: start: 200806, end: 20130302

REACTIONS (11)
  - Menorrhagia [None]
  - Embedded device [None]
  - Dyspareunia [None]
  - Device misuse [None]
  - Deformity [None]
  - Injury [None]
  - Emotional distress [None]
  - Depression [None]
  - Anxiety [None]
  - Anhedonia [None]
  - Device difficult to use [None]

NARRATIVE: CASE EVENT DATE: 2008
